FAERS Safety Report 7200615-1 (Version None)
Quarter: 2010Q4

REPORT INFORMATION
  Report Type: 
  Country: None (occurrence: None)
  Receive Date: 20101209
  Receipt Date: 20101126
  Transmission Date: 20110411
  Serious: Yes (Hospitalization, Disabling)
  Sender: FDA-Public Use
  Company Number: US-144816

PATIENT
  Age: 20 Year
  Sex: Male

DRUGS (18)
  1. VACCINIA IMMUNE GLOBULIN INTRAVENOUS (HUMAN) [Suspect]
     Indication: VACCINIA VIRUS INFECTION
     Dosage: (INTRAVENOUS)
     Route: 042
     Dates: start: 20090304, end: 20090304
  2. VACCINIA IMMUNE GLOBULIN INTRAVENOUS (HUMAN) [Suspect]
     Indication: VACCINIA VIRUS INFECTION
     Dosage: (INTRAVENOUS)
     Route: 042
     Dates: start: 20090311, end: 20090311
  3. VACCINIA IMMUNE GLOBULIN INTRAVENOUS (HUMAN) [Suspect]
     Indication: VACCINIA VIRUS INFECTION
     Dosage: (INTRAVENOUS)
     Route: 042
     Dates: start: 20090320, end: 20090320
  4. VACCINIA IMMUNE GLOBULIN INTRAVENOUS (HUMAN) [Suspect]
     Indication: VACCINIA VIRUS INFECTION
     Dosage: (INTRAVENOUS)
     Route: 042
     Dates: start: 20090324, end: 20090324
  5. VACCINIA IMMUNE GLOBULIN INTRAVENOUS (HUMAN) [Suspect]
     Indication: VACCINIA VIRUS INFECTION
     Dosage: (INTRAVENOUS)
     Route: 042
     Dates: start: 20090401, end: 20090401
  6. VACCINIA IMMUNE GLOBULIN INTRAVENOUS (HUMAN) [Suspect]
     Indication: VACCINIA VIRUS INFECTION
     Dosage: (INTRAVENOUS)
     Route: 042
     Dates: start: 20090403, end: 20090403
  7. VACCINIA IMMUNE GLOBULIN INTRAVENOUS (HUMAN) [Suspect]
     Indication: VACCINIA VIRUS INFECTION
     Dosage: (INTRAVENOUS)
     Route: 042
     Dates: start: 20090406, end: 20090406
  8. VACCINIA IMMUNE GLOBULIN INTRAVENOUS (HUMAN) [Suspect]
     Indication: VACCINIA VIRUS INFECTION
     Dosage: (INTRAVENOUS)
     Route: 042
     Dates: start: 20090408, end: 20090408
  9. VACCINIA IMMUNE GLOBULIN INTRAVENOUS (HUMAN) [Suspect]
     Indication: VACCINIA VIRUS INFECTION
     Dosage: (INTRAVENOUS)
     Route: 042
     Dates: start: 20090409, end: 20090409
  10. VACCINIA IMMUNE GLOBULIN INTRAVENOUS (HUMAN) [Suspect]
     Indication: VACCINIA VIRUS INFECTION
     Dosage: (INTRAVENOUS)
     Route: 042
     Dates: start: 20090414, end: 20090414
  11. VACCINIA IMMUNE GLOBULIN INTRAVENOUS (HUMAN) [Suspect]
     Indication: VACCINIA VIRUS INFECTION
     Dosage: (INTRAVENOUS)
     Route: 042
     Dates: start: 20090418, end: 20090418
  12. VACCINIA IMMUNE GLOBULIN INTRAVENOUS (HUMAN) [Suspect]
     Indication: VACCINIA VIRUS INFECTION
     Dosage: (INTRAVENOUS)
     Route: 042
     Dates: start: 20090423, end: 20090423
  13. VACCINIA IMMUNE GLOBULIN INTRAVENOUS (HUMAN) [Suspect]
     Indication: VACCINIA VIRUS INFECTION
     Dosage: (INTRAVENOUS)
     Route: 042
     Dates: start: 20090428, end: 20090428
  14. VACCINIA IMMUNE GLOBULIN INTRAVENOUS (HUMAN) [Suspect]
     Indication: VACCINIA VIRUS INFECTION
     Dosage: (INTRAVENOUS)
     Route: 042
     Dates: start: 20090508, end: 20090508
  15. IMIQUIMOD [Concomitant]
  16. CMX-001 (INVESTIGATIONAL DRUG) [Concomitant]
  17. ST-246 (INVESTIGATIONAL DRUG) [Concomitant]
  18. GRANULOCYTE COLONY STIMULATING FACTOR [Concomitant]

REACTIONS (22)
  - ACUTE MYELOID LEUKAEMIA [None]
  - CLOSTRIDIAL INFECTION [None]
  - DRY GANGRENE [None]
  - FEBRILE NEUTROPENIA [None]
  - HEADACHE [None]
  - IMPAIRED HEALING [None]
  - INJECTION SITE PUSTULE [None]
  - LEG AMPUTATION [None]
  - LEUKOPENIA [None]
  - MULTI-ORGAN FAILURE [None]
  - PERIRECTAL ABSCESS [None]
  - PSEUDOMONAL SEPSIS [None]
  - PYREXIA [None]
  - SEPTIC SHOCK [None]
  - STAPHYLOCOCCAL INFECTION [None]
  - SUPERINFECTION [None]
  - VACCINATION SITE ERYTHEMA [None]
  - VACCINATION SITE INDURATION [None]
  - VACCINATION SITE PRURITUS [None]
  - VACCINATION SITE SCAB [None]
  - VACCINATION SITE ULCER [None]
  - VACCINATION SITE VESICLES [None]
